FAERS Safety Report 6452718-7 (Version None)
Quarter: 2009Q4

REPORT INFORMATION
  Report Type: 
  Country: None (occurrence: None)
  Receive Date: 20091124
  Receipt Date: 20091113
  Transmission Date: 20100525
  Serious: Yes (Hospitalization, Other)
  Sender: FDA-Public Use
  Company Number: CA-JNJFOC-20091104702

PATIENT
  Age: 55 Year
  Sex: Female
  Weight: 51.71 kg

DRUGS (8)
  1. REMICADE [Suspect]
     Route: 042
     Dates: start: 20090622, end: 20090810
  2. REMICADE [Suspect]
     Route: 042
     Dates: start: 20090622, end: 20090810
  3. REMICADE [Suspect]
     Indication: RHEUMATOID ARTHRITIS
     Route: 042
     Dates: start: 20090622, end: 20090810
  4. LEFLUNOMIDE [Concomitant]
     Indication: RHEUMATOID ARTHRITIS
     Route: 048
  5. MELOXICAM [Concomitant]
     Indication: RHEUMATOID ARTHRITIS
     Route: 048
  6. ACETAMINOPHEN [Concomitant]
     Indication: RHEUMATOID ARTHRITIS
     Route: 048
  7. SYNTHROID [Concomitant]
     Indication: THYROIDECTOMY
     Route: 048
  8. AZATADINE [Concomitant]
     Indication: GASTROOESOPHAGEAL REFLUX DISEASE
     Route: 048

REACTIONS (2)
  - CHRONIC OBSTRUCTIVE PULMONARY DISEASE [None]
  - LUNG NEOPLASM MALIGNANT [None]
